FAERS Safety Report 8448244-6 (Version None)
Quarter: 2012Q2

REPORT INFORMATION
  Report Type: 
  Country: None (occurrence: None)
  Receive Date: 20120613
  Receipt Date: 20120611
  Transmission Date: 20120825
  Serious: Yes (Other)
  Sender: FDA-Public Use
  Company Number: ADR-2012-00946

PATIENT
  Sex: Female

DRUGS (3)
  1. HYDROMORPHONE HCL [Concomitant]
  2. BACLOFEN [Suspect]
     Indication: LUMBAR RADICULOPATHY
  3. BACLOFEN [Suspect]
     Indication: MUSCLE SPASTICITY

REACTIONS (6)
  - PAIN IN EXTREMITY [None]
  - FALL [None]
  - PAIN [None]
  - HYPOAESTHESIA [None]
  - IMPLANT SITE SCAR [None]
  - BALANCE DISORDER [None]
